FAERS Safety Report 12147747 (Version 2)
Quarter: 2016Q2

REPORT INFORMATION
  Report Type: Spontaneous
  Country: US (occurrence: US)
  Receive Date: 20160304
  Receipt Date: 20160406
  Transmission Date: 20160815
  Serious: No
  Sender: FDA-Public Use
  Company Number: US-ELI_LILLY_AND_COMPANY-US201602008052

PATIENT
  Sex: Female
  Weight: 120.2 kg

DRUGS (1)
  1. CIALIS [Suspect]
     Active Substance: TADALAFIL
     Indication: FEMALE ORGASMIC DISORDER
     Dosage: 20 MG, PRN
     Route: 065
     Dates: start: 20080222, end: 20080222

REACTIONS (2)
  - Tunnel vision [Recovered/Resolved]
  - Off label use [Recovered/Resolved]

NARRATIVE: CASE EVENT DATE: 20080222
